FAERS Safety Report 20146757 (Version 1)
Quarter: 2021Q4

REPORT INFORMATION
  Report Type: Spontaneous
  Country: IT (occurrence: IT)
  Receive Date: 20211203
  Receipt Date: 20211203
  Transmission Date: 20220303
  Serious: Yes (Other)
  Sender: FDA-Public Use
  Company Number: None

PATIENT
  Age: 75 Year
  Sex: Male

DRUGS (1)
  1. NUBEQA [Suspect]
     Active Substance: DAROLUTAMIDE
     Indication: Carcinoid tumour of the prostate
     Route: 048
     Dates: start: 20210608, end: 20211015

REACTIONS (4)
  - Jaundice [Recovering/Resolving]
  - Blood creatinine increased [Recovering/Resolving]
  - Blood bilirubin increased [Recovering/Resolving]
  - Malaise [Recovering/Resolving]

NARRATIVE: CASE EVENT DATE: 20210909
